FAERS Safety Report 4412407-7 (Version None)
Quarter: 2004Q2

REPORT INFORMATION
  Report Type: 
  Country: None (occurrence: None)
  Receive Date: 20040630
  Receipt Date: 20040408
  Transmission Date: 20050107
  Serious: No
  Sender: FDA-Public Use
  Company Number: 04P-163-0256610-00

PATIENT
  Age: 73 Year
  Sex: Female
  Weight: 48.0813 kg

DRUGS (7)
  1. HUMIRA [Suspect]
     Indication: RHEUMATOID ARTHRITIS
     Dosage: 40 MG, 1 IN 1 WK, SUBCUTANEOUS
     Route: 058
     Dates: start: 20030401
  2. PREDNISONE [Concomitant]
  3. PANTOPRAZOLE [Concomitant]
  4. MELOXICAM [Concomitant]
  5. HYDROCODONE [Concomitant]
  6. CALCIUM WITH VITAMIN D [Concomitant]
  7. FISH OIL [Concomitant]

REACTIONS (1)
  - EYE INFECTION [None]
